FAERS Safety Report 13519306 (Version 1)
Quarter: 2017Q2

REPORT INFORMATION
  Report Type: Spontaneous
  Country: CO (occurrence: CO)
  Receive Date: 20170505
  Receipt Date: 20170505
  Transmission Date: 20170830
  Serious: Yes (Hospitalization)
  Sender: FDA-Public Use
  Company Number: CO-CELLTRION HEALTHCARE HUNGARY KFT-2016CO014831

PATIENT

DRUGS (3)
  1. REMSIMA [Suspect]
     Active Substance: INFLIXIMAB
     Dosage: 300 MG, 8 WEEKS
     Route: 042
     Dates: start: 20160930, end: 20160930
  2. ATORVASTATIN W/EZETIMIBE [Concomitant]
     Indication: PRODUCT USED FOR UNKNOWN INDICATION
     Dosage: 10+40 MG; 24 HOURS
     Route: 048
  3. REMSIMA [Suspect]
     Active Substance: INFLIXIMAB
     Indication: RHEUMATOID ARTHRITIS
     Dosage: 300 MG, 8 WEEKS
     Route: 042
     Dates: start: 20160108, end: 20160108

REACTIONS (2)
  - Dizziness [Recovering/Resolving]
  - Oxygen saturation decreased [Recovering/Resolving]

NARRATIVE: CASE EVENT DATE: 20160930
